FAERS Safety Report 7258911-8 (Version None)
Quarter: 2011Q1

REPORT INFORMATION
  Report Type: 
  Country: None (occurrence: None)
  Receive Date: 20110129
  Receipt Date: 20100611
  Transmission Date: 20110831
  Serious: No
  Sender: FDA-Public Use
  Company Number: US-ABBOTT-10P-163-0651179-00

PATIENT
  Sex: Female

DRUGS (2)
  1. HUMIRA [Suspect]
     Indication: ANKYLOSING SPONDYLITIS
     Dates: start: 20100501
  2. HUMIRA [Suspect]
     Route: 058
     Dates: end: 20100519

REACTIONS (2)
  - ANKYLOSING SPONDYLITIS [None]
  - SINUSITIS [None]
